FAERS Safety Report 7949664-6 (Version None)
Quarter: 2011Q4

REPORT INFORMATION
  Report Type: 
  Country: None (occurrence: None)
  Receive Date: 20111130
  Receipt Date: 20111122
  Transmission Date: 20120403
  Serious: Yes (Death, Hospitalization)
  Sender: FDA-Public Use
  Company Number: US-ACTELION-A-NJ2011-57492

PATIENT

DRUGS (3)
  1. EPOPROSTENOL SODIUM [Suspect]
     Indication: PULMONARY ARTERIAL HYPERTENSION
     Dosage: 60 NG/KG, PER MIN
     Route: 041
     Dates: start: 20100623
  2. EPOPROSTENOL SODIUM [Suspect]
     Dosage: 64 NG/KG, PER MIN
     Route: 041
     Dates: start: 20110101, end: 20111120
  3. ADCIRCA [Concomitant]

REACTIONS (1)
  - RESPIRATORY FAILURE [None]
